FAERS Safety Report 8835963 (Version 1)
Quarter: 2012Q4

REPORT INFORMATION
  Report Type: 
  Country: FR (occurrence: FR)
  Receive Date: 20121011
  Receipt Date: 20121011
  Transmission Date: 20130627
  Serious: Yes (Hospitalization)
  Sender: FDA-Public Use
  Company Number: FR-NOVOPROD-361479

PATIENT
  Age: 77 Year
  Sex: Female

DRUGS (14)
  1. NOVONORM [Suspect]
     Indication: TYPE 2 DIABETES MELLITUS
     Dosage: 4 mg daily
     Route: 048
  2. NOVONORM [Suspect]
     Dosage: 1.5 mg, qd
     Route: 048
     Dates: start: 20120903, end: 20120907
  3. JANUMET [Suspect]
     Indication: TYPE 2 DIABETES MELLITUS
     Route: 048
     Dates: end: 20120903
  4. LANTUS [Suspect]
     Indication: INSULIN-REQUIRING TYPE 2 DIABETES MELLITUS
     Dosage: 50 IU, qd
     Route: 058
  5. LANTUS [Suspect]
     Dosage: 30 IU, qd
  6. LYRICA [Concomitant]
  7. RASILEZ [Concomitant]
  8. NORSET [Concomitant]
  9. ZYLORIC [Concomitant]
  10. PLAVIX [Concomitant]
  11. SELOKEN                            /00376902/ [Concomitant]
  12. TAHOR [Concomitant]
  13. LEVOTHYROX [Concomitant]
  14. STILNOX [Concomitant]

REACTIONS (1)
  - Hypoglycaemic coma [Recovered/Resolved]
